FAERS Safety Report 7810148-7 (Version None)
Quarter: 2011Q4

REPORT INFORMATION
  Report Type: 
  Country: None (occurrence: None)
  Receive Date: 20111012
  Receipt Date: 20111008
  Transmission Date: 20120403
  Serious: No
  Sender: FDA-Public Use
  Company Number: US-TEVA-304643USA

PATIENT
  Sex: Female
  Weight: 70.37 kg

DRUGS (1)
  1. PLAN B ONE-STEP [Suspect]
     Indication: POST COITAL CONTRACEPTION
     Dosage: 1.5 MILLIGRAM;
     Route: 048
     Dates: start: 20111005, end: 20111005

REACTIONS (2)
  - ABDOMINAL DISTENSION [None]
  - SOMNOLENCE [None]
